FAERS Safety Report 6758144-5 (Version None)
Quarter: 2010Q2

REPORT INFORMATION
  Report Type: 
  Country: None (occurrence: None)
  Receive Date: 20100607
  Receipt Date: 20091124
  Transmission Date: 20101027
  Serious: Yes (Hospitalization)
  Sender: FDA-Public Use
  Company Number: US-ASTRAZENECA-2009SE25247

PATIENT
  Age: 79 Year
  Sex: Male
  Weight: 102.1 kg

DRUGS (9)
  1. PRILOSEC OTC [Suspect]
     Indication: OESOPHAGEAL ULCER
     Route: 048
     Dates: start: 20070101, end: 20090901
  2. PRILOSEC OTC [Suspect]
     Indication: GASTROOESOPHAGEAL REFLUX DISEASE
     Route: 048
     Dates: start: 20070101, end: 20090901
  3. PRILOSEC OTC [Suspect]
     Route: 048
     Dates: start: 20090101
  4. PRILOSEC OTC [Suspect]
     Route: 048
     Dates: start: 20090101
  5. FLUCONAZOLE [Suspect]
     Indication: CANDIDIASIS
     Dosage: AS NECESSARY, TWO OR THREE TIMES PER YEAR
  6. ATENOLOL [Concomitant]
     Indication: HYPOTENSION
     Route: 065
  7. ATENOLOL [Concomitant]
     Route: 065
  8. ANTIFUNGALS [Concomitant]
  9. VITAMINS AND MINERALS [Concomitant]

REACTIONS (4)
  - BLOOD ELECTROLYTES DECREASED [None]
  - CANDIDIASIS [None]
  - CONSTIPATION [None]
  - PRODUCT PACKAGING ISSUE [None]
